FAERS Safety Report 7892592-5 (Version None)
Quarter: 2011Q4

REPORT INFORMATION
  Report Type: 
  Country: None (occurrence: None)
  Receive Date: 20111102
  Receipt Date: 20111019
  Transmission Date: 20120403
  Serious: Yes (Life-Threatening)
  Sender: FDA-Public Use
  Company Number: DE-1188634

PATIENT
  Sex: Male

DRUGS (1)
  1. AZOPT [Suspect]
     Dosage: (OPHTHALMIC)
     Route: 047

REACTIONS (2)
  - DEPRESSION [None]
  - SUICIDE ATTEMPT [None]
